FAERS Safety Report 16912000 (Version 4)
Quarter: 2019Q4

REPORT INFORMATION
  Report Type: Report from Study
  Country: US (occurrence: US)
  Receive Date: 20191014
  Receipt Date: 20191119
  Transmission Date: 20200122
  Serious: No
  Sender: FDA-Public Use
  Company Number: US-AMGEN-USASP2019167610

PATIENT
  Sex: Male

DRUGS (1)
  1. ENBREL [Suspect]
     Active Substance: ETANERCEPT
     Indication: PRODUCT USED FOR UNKNOWN INDICATION
     Dosage: 50 MILLIGRAM, QWK
     Route: 065

REACTIONS (13)
  - Injection site rash [Unknown]
  - Therapeutic product effect incomplete [Unknown]
  - Infection [Unknown]
  - Rash pruritic [Unknown]
  - Injection site swelling [Unknown]
  - Drug hypersensitivity [Unknown]
  - Swelling [Recovering/Resolving]
  - Injection site exfoliation [Unknown]
  - Rash papular [Unknown]
  - Injection site pruritus [Unknown]
  - Dental care [Unknown]
  - Hearing aid user [Unknown]
  - Injection site erythema [Unknown]
